FAERS Safety Report 15037509 (Version 2)
Quarter: 2018Q3

REPORT INFORMATION
  Report Type: Report from Study
  Country: CO (occurrence: CO)
  Receive Date: 20180620
  Receipt Date: 20180703
  Transmission Date: 20181010
  Serious: Yes (Hospitalization, Other)
  Sender: FDA-Public Use
  Company Number: CO-BRISTOL-MYERS SQUIBB COMPANY-BMS-2018-024519

PATIENT
  Age: 69 Year
  Sex: Male

DRUGS (1)
  1. NIVOLUMAB [Suspect]
     Active Substance: NIVOLUMAB
     Indication: MALIGNANT MELANOMA
     Dosage: 200 MG, 15 DAYS
     Route: 042
     Dates: start: 20180226

REACTIONS (6)
  - Tumour rupture [Recovering/Resolving]
  - Infected neoplasm [Recovering/Resolving]
  - Deep vein thrombosis [Recovering/Resolving]
  - Genital tract inflammation [Recovering/Resolving]
  - Pyrexia [Recovering/Resolving]
  - Depression [Recovering/Resolving]

NARRATIVE: CASE EVENT DATE: 20180308
